FAERS Safety Report 6139977-5 (Version None)
Quarter: 2009Q1

REPORT INFORMATION
  Report Type: 
  Country: None (occurrence: None)
  Receive Date: 20090331
  Receipt Date: 20090331
  Transmission Date: 20090719
  Serious: Yes (Hospitalization)
  Sender: FDA-Public Use
  Company Number: None

PATIENT
  Age: 49 Year
  Sex: Male
  Weight: 103.4201 kg

DRUGS (1)
  1. CYMBALTA [Suspect]
     Dosage: 1 PER DAY
     Dates: start: 20090105, end: 20090327

REACTIONS (3)
  - EAR INFECTION [None]
  - HEADACHE [None]
  - PAIN [None]
